FAERS Safety Report 17265605 (Version 2)
Quarter: 2020Q1

REPORT INFORMATION
  Report Type: Spontaneous
  Country: US (occurrence: US)
  Receive Date: 20200114
  Receipt Date: 20200318
  Transmission Date: 20200409
  Serious: No
  Sender: FDA-Public Use
  Company Number: US-BRISTOL-MYERS SQUIBB COMPANY-BMS-2020-002620

PATIENT
  Sex: Female

DRUGS (1)
  1. ORENCIA [Suspect]
     Active Substance: ABATACEPT
     Indication: PRODUCT USED FOR UNKNOWN INDICATION
     Dosage: EVERY WEEK
     Route: 058
     Dates: start: 20191125

REACTIONS (5)
  - Eating disorder [Unknown]
  - Anxiety [Unknown]
  - Depression [Unknown]
  - Restlessness [Unknown]
  - Poor quality sleep [Unknown]
